FAERS Safety Report 17469885 (Version 2)
Quarter: 2020Q1

REPORT INFORMATION
  Report Type: Report from Study
  Country: US (occurrence: US)
  Receive Date: 20200227
  Receipt Date: 20200302
  Transmission Date: 20200409
  Serious: No
  Sender: FDA-Public Use
  Company Number: NVSC2020US056376

PATIENT
  Age: 29 Year
  Sex: Female

DRUGS (2)
  1. MAYZENT [Suspect]
     Active Substance: SIPONIMOD
     Indication: ERYTHEMA
     Dosage: 2 MG, QD
     Route: 048
     Dates: start: 20200126
  2. MAYZENT [Suspect]
     Active Substance: SIPONIMOD
     Indication: DRY SKIN

REACTIONS (3)
  - Dry skin [Not Recovered/Not Resolved]
  - Erythema [Not Recovered/Not Resolved]
  - Product use in unapproved indication [Unknown]

NARRATIVE: CASE EVENT DATE: 20200126
